FAERS Safety Report 5723971-X (Version None)
Quarter: 2008Q2

REPORT INFORMATION
  Report Type: 
  Country: None (occurrence: None)
  Receive Date: 20080430
  Receipt Date: 20080423
  Transmission Date: 20081010
  Serious: Yes (Hospitalization)
  Sender: FDA-Public Use
  Company Number: US-BAXTER-2008BH004242

PATIENT
  Sex: Female

DRUGS (1)
  1. HEPARIN SODIUM [Suspect]
     Indication: CARDIAC OPERATION
     Dosage: DOSE UNIT:UNKNOWN
     Route: 065
     Dates: start: 20041101, end: 20041101

REACTIONS (2)
  - HYPERSENSITIVITY [None]
  - MALAISE [None]
